FAERS Safety Report 11421024 (Version 6)
Quarter: 2015Q4

REPORT INFORMATION
  Report Type: Report from Study
  Country: CZ (occurrence: CZ)
  Receive Date: 20150826
  Receipt Date: 20151020
  Transmission Date: 20160304
  Serious: Yes (Life-Threatening, Hospitalization)
  Sender: FDA-Public Use
  Company Number: PHHO2015CZ013428

PATIENT
  Age: 41 Year
  Sex: Male
  Weight: 90 kg

DRUGS (8)
  1. ANAPYRIN [Concomitant]
     Indication: PROPHYLAXIS
     Dosage: 100 UG, QD
     Route: 065
     Dates: start: 20150519
  2. CYNT//MOXONIDINE [Concomitant]
     Indication: HYPERTENSION
     Dosage: 0.4 MG, BID
     Route: 065
     Dates: start: 20150519
  3. AMN107 [Suspect]
     Active Substance: NILOTINIB
     Indication: CHRONIC MYELOID LEUKAEMIA
     Dosage: 200 MG, BID
     Route: 048
     Dates: start: 20100714, end: 20150607
  4. BLESSIN [Concomitant]
     Indication: HYPERTENSION
     Dosage: 160 MG, QD
     Route: 065
     Dates: start: 20150519
  5. ZOXON [Concomitant]
     Active Substance: DOXAZOSIN\DOXAZOSIN MESYLATE
     Indication: HYPERTENSION
     Dosage: 4 MG, QD
     Route: 065
     Dates: start: 20140217
  6. APO PANTO [Concomitant]
     Indication: PROPHYLAXIS
     Dosage: 40 MG, BID
     Route: 065
     Dates: start: 20150519
  7. ADENURIC [Concomitant]
     Active Substance: FEBUXOSTAT
     Indication: HYPERTENSION
     Dosage: 80 UG, QD
     Route: 065
     Dates: start: 20150519
  8. FURON [Concomitant]
     Active Substance: FUROSEMIDE
     Indication: HYPERTENSION
     Dosage: 40 UG, QD
     Route: 065
     Dates: start: 20150519

REACTIONS (1)
  - Renal artery stenosis [Recovering/Resolving]

NARRATIVE: CASE EVENT DATE: 20150607
